FAERS Safety Report 4318747-4 (Version None)
Quarter: 2004Q1

REPORT INFORMATION
  Report Type: 
  Country: None (occurrence: None)
  Receive Date: 20040315
  Receipt Date: 20040305
  Transmission Date: 20041129
  Serious: Yes (Other)
  Sender: FDA-Public Use
  Company Number: 2004202474US

PATIENT
  Sex: Female

DRUGS (2)
  1. XALATAN [Suspect]
     Dosage: INTRAOCULAR
     Route: 031
  2. COSOPT [Concomitant]

REACTIONS (5)
  - ACCIDENTAL OVERDOSE [None]
  - MALAISE [None]
  - PEMPHIGOID [None]
  - PHARMACEUTICAL PRODUCT COMPLAINT [None]
  - SCAR [None]
